FAERS Safety Report 6724026-8 (Version None)
Quarter: 2010Q2

REPORT INFORMATION
  Report Type: 
  Country: None (occurrence: None)
  Receive Date: 20100513
  Receipt Date: 20100505
  Transmission Date: 20101027
  Serious: Yes (Death, Hospitalization)
  Sender: FDA-Public Use
  Company Number: A0858393A

PATIENT
  Age: 68 Year
  Sex: Female

DRUGS (2)
  1. HYCAMTIN [Suspect]
     Route: 048
     Dates: start: 20100401, end: 20100401
  2. NO CONCURRENT MEDICATION [Concomitant]

REACTIONS (9)
  - ALOPECIA [None]
  - DEATH [None]
  - DECREASED APPETITE [None]
  - DEHYDRATION [None]
  - FATIGUE [None]
  - HYPOTENSION [None]
  - NAUSEA [None]
  - PYREXIA [None]
  - VOMITING [None]
